FAERS Safety Report 11263606 (Version 1)
Quarter: 2015Q3

REPORT INFORMATION
  Report Type: Spontaneous
  Country: US (occurrence: US)
  Receive Date: 20150713
  Receipt Date: 20150713
  Transmission Date: 20151125
  Serious: Yes (Other)
  Sender: FDA-Public Use
  Company Number: US-AMGEN-USASP2015067542

PATIENT
  Age: 43 Year
  Sex: Male

DRUGS (1)
  1. BLINCYTO [Suspect]
     Active Substance: BLINATUMOMAB
     Indication: PRODUCT USED FOR UNKNOWN INDICATION
     Dosage: UNK
     Route: 065
     Dates: start: 201506

REACTIONS (7)
  - Blast cell count increased [Unknown]
  - Dyspnoea [Recovering/Resolving]
  - Clostridium difficile colitis [Unknown]
  - Lung infiltration [Recovering/Resolving]
  - White blood cell count increased [Unknown]
  - Confusional state [Unknown]
  - Mental status changes [Unknown]

NARRATIVE: CASE EVENT DATE: 201506
